FAERS Safety Report 23409933 (Version 1)
Quarter: 2024Q1

REPORT INFORMATION
  Report Type: Spontaneous
  Country: None (occurrence: US)
  Receive Date: 20240117
  Receipt Date: 20240117
  Transmission Date: 20240410
  Serious: Yes (Death, Other)
  Sender: FDA-Public Use
  Company Number: US-Jerome Stevens Pharmaceuticals, Inc.-2151432

PATIENT
  Sex: Female

DRUGS (1)
  1. DIGOXIN [Suspect]
     Active Substance: DIGOXIN
     Indication: Spinal anaesthesia
     Route: 037

REACTIONS (10)
  - Brain death [Fatal]
  - Facial paralysis [Fatal]
  - Hemiparesis [Fatal]
  - Apnoea [Fatal]
  - Paralysis [Fatal]
  - Vision blurred [Fatal]
  - Dizziness [Fatal]
  - Headache [Fatal]
  - Maternal exposure during pregnancy [Fatal]
  - Medication error [Fatal]
